FAERS Safety Report 8155548-3 (Version None)
Quarter: 2012Q1

REPORT INFORMATION
  Report Type: 
  Country: None (occurrence: None)
  Receive Date: 20120222
  Receipt Date: 20120214
  Transmission Date: 20120608
  Serious: Yes (Death)
  Sender: FDA-Public Use
  Company Number: EG-SANOFI-AVENTIS-2012SA009624

PATIENT
  Age: 71 Year
  Sex: Male

DRUGS (2)
  1. INSULIN [Concomitant]
     Route: 058
     Dates: end: 20111012
  2. LANTUS [Suspect]
     Dosage: DOSE:24 UNIT(S)
     Route: 058
     Dates: start: 20110803, end: 20111012

REACTIONS (1)
  - NEOPLASM MALIGNANT [None]
